FAERS Safety Report 5454592-4 (Version None)
Quarter: 2007Q3

REPORT INFORMATION
  Report Type: 
  Country: None (occurrence: None)
  Receive Date: 20070917
  Receipt Date: 20070912
  Transmission Date: 20080115
  Serious: Yes (Other)
  Sender: FDA-Public Use
  Company Number: PHEH2007US08894

PATIENT
  Age: 71 Year
  Sex: Female

DRUGS (3)
  1. TEKTURNA [Suspect]
     Indication: HYPERTENSION
     Dosage: UNK, QD
     Route: 048
     Dates: start: 20070607
  2. HORMONES [Concomitant]
     Indication: BREAST CANCER
  3. FEMARA [Concomitant]

REACTIONS (11)
  - ALANINE AMINOTRANSFERASE INCREASED [None]
  - ASPARTATE AMINOTRANSFERASE INCREASED [None]
  - BLOOD CREATININE INCREASED [None]
  - CHOLECYSTECTOMY [None]
  - DIVERTICULUM [None]
  - HEPATIC ENZYME INCREASED [None]
  - OSTEITIS DEFORMANS [None]
  - RENAL ATROPHY [None]
  - RENAL CYST [None]
  - SINUS POLYP [None]
  - THYROID NEOPLASM [None]
